FAERS Safety Report 4906631-4 (Version None)
Quarter: 2006Q1

REPORT INFORMATION
  Report Type: 
  Country: None (occurrence: None)
  Receive Date: 20060206
  Receipt Date: 20060123
  Transmission Date: 20060701
  Serious: Yes (Life-Threatening)
  Sender: FDA-Public Use
  Company Number: HQWYE505526JAN06

PATIENT
  Age: 43 Year
  Sex: Male

DRUGS (1)
  1. MYLOTARG [Suspect]
     Indication: ACUTE MYELOID LEUKAEMIA
     Dosage: A SINGLE 9MG/M^2 DOSE INTRAVENOUS DRIP
     Route: 041
     Dates: start: 20051115, end: 20051115

REACTIONS (4)
  - DISEASE PROGRESSION [None]
  - PERIANAL ABSCESS [None]
  - PLATELET COUNT DECREASED [None]
  - PYREXIA [None]
